FAERS Safety Report 19875693 (Version 1)
Quarter: 2021Q3

REPORT INFORMATION
  Report Type: Spontaneous
  Country: US (occurrence: US)
  Receive Date: 20210924
  Receipt Date: 20210924
  Transmission Date: 20211014
  Serious: Yes (Other)
  Sender: FDA-Public Use
  Company Number: US-DRREDDYS-SPO/USA/21/0140383

PATIENT
  Age: 16 Year
  Sex: Female

DRUGS (1)
  1. ZENATANE [Suspect]
     Active Substance: ISOTRETINOIN
     Indication: PRODUCT USED FOR UNKNOWN INDICATION
     Dosage: RMA ISSUE DATE: 29 MARCH 2021 12:00:00 AM, 24 MAY 2021 12:00:00 AM, 05 JULY 2021 2:22:28 PM

REACTIONS (3)
  - Suicidal ideation [Unknown]
  - Mood swings [Unknown]
  - Anxiety [Unknown]
